FAERS Safety Report 9906675 (Version 1)
Quarter: 2014Q1

REPORT INFORMATION
  Report Type: Spontaneous
  Country: DK (occurrence: DE)
  Receive Date: 20140218
  Receipt Date: 20140218
  Transmission Date: 20141002
  Serious: Yes (Other)
  Sender: FDA-Public Use
  Company Number: DE-FRI-1000054289

PATIENT
  Sex: Female

DRUGS (1)
  1. CITALOPRAM [Suspect]

REACTIONS (1)
  - Rib fracture [Unknown]
